FAERS Safety Report 5723904-6 (Version None)
Quarter: 2008Q2

REPORT INFORMATION
  Report Type: 
  Country: None (occurrence: None)
  Receive Date: 20080430
  Receipt Date: 20080418
  Transmission Date: 20081010
  Serious: Yes (Other)
  Sender: FDA-Public Use
  Company Number: AU-WYE-G01467808

PATIENT
  Sex: Male

DRUGS (2)
  1. EFFEXOR XR [Suspect]
     Route: 048
     Dates: start: 20070401, end: 20080401
  2. EFFEXOR XR [Suspect]
     Route: 048
     Dates: start: 20080401

REACTIONS (3)
  - AGGRESSION [None]
  - ALCOHOL ABUSE [None]
  - THINKING ABNORMAL [None]
